FAERS Safety Report 16057591 (Version 1)
Quarter: 2019Q1

REPORT INFORMATION
  Report Type: Spontaneous
  Country: US (occurrence: US)
  Receive Date: 20190311
  Receipt Date: 20190311
  Transmission Date: 20190418
  Serious: No
  Sender: FDA-Public Use
  Company Number: US-SA-2019SA063331

PATIENT
  Age: 75 Year
  Sex: Female

DRUGS (2)
  1. ELITEK [Suspect]
     Active Substance: RASBURICASE
     Indication: NON-HODGKIN^S LYMPHOMA
  2. ELITEK [Suspect]
     Active Substance: RASBURICASE
     Indication: B-CELL LYMPHOMA
     Dosage: 3.5 MG

REACTIONS (1)
  - Blood uric acid decreased [Unknown]
